FAERS Safety Report 5141060-2 (Version None)
Quarter: 2006Q4

REPORT INFORMATION
  Report Type: 
  Country: None (occurrence: None)
  Receive Date: 20061026
  Receipt Date: 20061016
  Transmission Date: 20070319
  Serious: Yes (Life-Threatening, Hospitalization, Other)
  Sender: FDA-Public Use
  Company Number: 2006122748

PATIENT
  Age: 14 Year
  Sex: Female

DRUGS (3)
  1. NIFEDIPINE [Suspect]
     Indication: HYPERTENSION
     Dosage: 40 MG (20 MG, TWICE DAILY)
  2. CHLORPROMAZINE [Concomitant]
  3. PROPRANOLOL [Concomitant]

REACTIONS (8)
  - BRADYCARDIA [None]
  - CIRCULATORY COLLAPSE [None]
  - CYANOSIS [None]
  - DIARRHOEA [None]
  - HALLUCINATION, VISUAL [None]
  - PARAESTHESIA [None]
  - PORPHYRIA ACUTE [None]
  - WEIGHT BEARING DIFFICULTY [None]
